FAERS Safety Report 6801775-4 (Version None)
Quarter: 2010Q2

REPORT INFORMATION
  Report Type: 
  Country: None (occurrence: None)
  Receive Date: 20100629
  Receipt Date: 20100614
  Transmission Date: 20101027
  Serious: Yes (Hospitalization)
  Sender: FDA-Public Use
  Company Number: PHHY2010VE38076

PATIENT
  Sex: Female

DRUGS (1)
  1. LOPRESSOR [Suspect]
     Indication: HYPERTENSION
     Dosage: 100 MG, UNK
     Dates: start: 20070101

REACTIONS (1)
  - TRANSMYOCARDIAL REVASCULARISATION [None]
